FAERS Safety Report 5729156-5 (Version None)
Quarter: 2008Q2

REPORT INFORMATION
  Report Type: 
  Country: None (occurrence: None)
  Receive Date: 20080506
  Receipt Date: 20080425
  Transmission Date: 20081010
  Serious: Yes (Other)
  Sender: FDA-Public Use
  Company Number: US-JNJFOC-20080407412

PATIENT
  Age: 61 Year
  Sex: Female
  Weight: 81.65 kg

DRUGS (3)
  1. NIZORAL A-D [Suspect]
  2. NIZORAL A-D [Suspect]
     Indication: DANDRUFF
     Dosage: ^HANDFUL^, TWICE
  3. LOPRESSOR [Concomitant]
     Indication: BLOOD PRESSURE ABNORMAL

REACTIONS (2)
  - ALOPECIA [None]
  - EXPIRED DRUG ADMINISTERED [None]
